FAERS Safety Report 6285601-0 (Version None)
Quarter: 2009Q3

REPORT INFORMATION
  Report Type: 
  Country: None (occurrence: None)
  Receive Date: 20090724
  Receipt Date: 20090716
  Transmission Date: 20100115
  Serious: Yes (Life-Threatening)
  Sender: FDA-Public Use
  Company Number: 2009-201033-NL

PATIENT
  Age: 46 Year
  Sex: Female
  Weight: 74.8 kg

DRUGS (1)
  1. NUVARING [Suspect]
     Dosage: NI, 4 WEEKS
     Dates: start: 20090616, end: 20090713

REACTIONS (4)
  - CHEST PAIN [None]
  - HEADACHE [None]
  - MOOD SWINGS [None]
  - PARAESTHESIA [None]
